FAERS Safety Report 4453279-4 (Version None)
Quarter: 2004Q3

REPORT INFORMATION
  Report Type: 
  Country: None (occurrence: None)
  Receive Date: 20040902
  Receipt Date: 20040513
  Transmission Date: 20050211
  Serious: No
  Sender: FDA-Public Use
  Company Number: 200417890BWH

PATIENT
  Age: 70 Year
  Sex: Male
  Weight: 99.7913 kg

DRUGS (7)
  1. LEVITRA [Suspect]
     Indication: ERECTILE DYSFUNCTION
     Dosage: 10 MG, OW, ORAL
     Route: 048
     Dates: start: 20040401
  2. ZOLOFT [Concomitant]
  3. LISINOPRIL [Concomitant]
  4. ATROVENT NEBULES [Concomitant]
  5. ALBUTEROL NEBULES [Concomitant]
  6. ALBUTEROL [Concomitant]
  7. OXYGEN [Concomitant]

REACTIONS (3)
  - ERECTILE DYSFUNCTION [None]
  - PRURITUS [None]
  - RASH [None]
